FAERS Safety Report 5263064-1 (Version None)
Quarter: 2007Q1

REPORT INFORMATION
  Report Type: 
  Country: None (occurrence: None)
  Receive Date: 20070312
  Receipt Date: 20070221
  Transmission Date: 20070707
  Serious: Yes (Other)
  Sender: FDA-Public Use
  Company Number: US-PFIZER INC-2006030414

PATIENT
  Sex: Male
  Weight: 108.9 kg

DRUGS (2)
  1. BEXTRA [Suspect]
     Indication: MUSCULOSKELETAL PAIN
     Dates: start: 20031229, end: 20040105
  2. BEXTRA [Suspect]
     Indication: BACK PAIN

REACTIONS (1)
  - STEVENS-JOHNSON SYNDROME [None]
